FAERS Safety Report 5646875-X (Version None)
Quarter: 2008Q1

REPORT INFORMATION
  Report Type: 
  Country: None (occurrence: None)
  Receive Date: 20080228
  Receipt Date: 20080214
  Transmission Date: 20080703
  Serious: Yes (Other)
  Sender: FDA-Public Use
  Company Number: 2008S1002419

PATIENT
  Age: 34 Year
  Sex: Male

DRUGS (2)
  1. CITALOPRAM HYDROBROMIDE [Suspect]
     Indication: DRUG USE FOR UNKNOWN INDICATION
  2. CHAMPIX /05703001/ (VARENICLINE) [Suspect]
     Indication: SMOKING CESSATION THERAPY
     Dosage: 1 MG;TWICE A DAY;ORAL
     Route: 048

REACTIONS (2)
  - DRUG INTERACTION [None]
  - MANIA [None]
